FAERS Safety Report 21965419 (Version 1)
Quarter: 2023Q1

REPORT INFORMATION
  Report Type: Spontaneous
  Country: US (occurrence: US)
  Receive Date: 20230208
  Receipt Date: 20230208
  Transmission Date: 20230418
  Serious: No
  Sender: FDA-Public Use
  Company Number: US-CIPLA LTD.-2022US07137

PATIENT

DRUGS (2)
  1. RITONAVIR [Suspect]
     Active Substance: RITONAVIR
     Indication: COVID-19
     Dosage: UNK
     Route: 065
  2. NIRMATRELVIR [Suspect]
     Active Substance: NIRMATRELVIR
     Indication: COVID-19
     Dosage: UNK, FOUR DOSES
     Route: 065

REACTIONS (5)
  - Skin burning sensation [Unknown]
  - Pruritus [Unknown]
  - Rash macular [Unknown]
  - Off label use [Unknown]
  - Product use in unapproved indication [Unknown]
